FAERS Safety Report 12023227 (Version 1)
Quarter: 2016Q1

REPORT INFORMATION
  Report Type: Report from Study
  Country: US (occurrence: US)
  Receive Date: 20160206
  Receipt Date: 20160206
  Transmission Date: 20160526
  Serious: No
  Sender: FDA-Public Use
  Company Number: US-ABBVIE-15K-163-1472278-00

PATIENT
  Age: 61 Year
  Sex: Female

DRUGS (2)
  1. PROGRAF [Concomitant]
     Active Substance: TACROLIMUS\TACROLIMUS ANHYDROUS
     Indication: PRODUCT USED FOR UNKNOWN INDICATION
  2. HUMIRA [Suspect]
     Active Substance: ADALIMUMAB
     Indication: CROHN^S DISEASE
     Route: 058
     Dates: start: 2012

REACTIONS (6)
  - Arthropod bite [Recovered/Resolved]
  - Pruritus [Unknown]
  - Skin exfoliation [Unknown]
  - Cellulitis [Recovering/Resolving]
  - Injection site pain [Not Recovered/Not Resolved]
  - Scratch [Unknown]

NARRATIVE: CASE EVENT DATE: 2012
